FAERS Safety Report 21610752 (Version 2)
Quarter: 2022Q4

REPORT INFORMATION
  Report Type: Other
  Country: CA (occurrence: CA)
  Receive Date: 20221117
  Receipt Date: 20221123
  Transmission Date: 20230112
  Serious: Yes (Other)
  Sender: FDA-Public Use
  Company Number: CA-002147023-PHHY2015CA163257

PATIENT
  Age: 68 Year
  Sex: Female

DRUGS (12)
  1. XOLAIR [Suspect]
     Active Substance: OMALIZUMAB
     Indication: Asthma
     Dosage: 225 MG, EVERY 4 WEEKS
     Route: 058
     Dates: start: 20150812
  2. XOLAIR [Suspect]
     Active Substance: OMALIZUMAB
     Dosage: UNK
     Route: 058
     Dates: start: 20160304
  3. XOLAIR [Suspect]
     Active Substance: OMALIZUMAB
     Dosage: 225 MG, EVERY 4 WEEKS
     Route: 058
     Dates: start: 20200110
  4. XOLAIR [Suspect]
     Active Substance: OMALIZUMAB
     Dosage: 225 MG, EVERY 4 WEEKS
     Route: 065
  5. XOLAIR [Suspect]
     Active Substance: OMALIZUMAB
     Dosage: 225 MG EVERY 2 WEEKS
     Route: 065
  6. PULMICORT TURBUHALER [Concomitant]
     Active Substance: BUDESONIDE
     Indication: Product used for unknown indication
     Dosage: 4 DF, QD
     Route: 065
     Dates: start: 2012
  7. SPIRIVA [Concomitant]
     Active Substance: TIOTROPIUM BROMIDE MONOHYDRATE
     Indication: Product used for unknown indication
     Dosage: UNK, QD
     Route: 065
     Dates: start: 2018
  8. PANTOPRAZOLE MAGNESIUM [Concomitant]
     Active Substance: PANTOPRAZOLE MAGNESIUM
     Indication: Abdominal discomfort
     Dosage: 1 DF, QD
     Route: 048
     Dates: start: 201311
  9. DILTIAZEM [Concomitant]
     Active Substance: DILTIAZEM
     Indication: Product used for unknown indication
     Dosage: UNK
     Route: 065
  10. SYNTHROID [Concomitant]
     Active Substance: LEVOTHYROXINE SODIUM
     Indication: Product used for unknown indication
     Dosage: UNK
     Route: 065
  11. PLAVIX [Concomitant]
     Active Substance: CLOPIDOGREL BISULFATE
     Indication: Product used for unknown indication
     Dosage: UNK
     Route: 065
  12. PREDNISONE [Concomitant]
     Active Substance: PREDNISONE
     Indication: Product used for unknown indication
     Dosage: UNK, QD
     Route: 065
     Dates: start: 2018

REACTIONS (20)
  - Incorrect dose administered [Unknown]
  - Pneumonia [Unknown]
  - Pulmonary fibrosis [Unknown]
  - Drug ineffective [Unknown]
  - Supraventricular tachycardia [Unknown]
  - Dyspnoea [Unknown]
  - Infection susceptibility increased [Unknown]
  - Product dose omission issue [Unknown]
  - Bronchitis [Recovering/Resolving]
  - Cardiac disorder [Unknown]
  - Wheezing [Unknown]
  - Middle insomnia [Unknown]
  - Cough [Unknown]
  - Pulmonary function test decreased [Unknown]
  - Heart rate increased [Unknown]
  - Malaise [Unknown]
  - General physical health deterioration [Unknown]
  - Herpes zoster [Unknown]
  - Forced expiratory volume decreased [Recovering/Resolving]
  - Asthma [Unknown]

NARRATIVE: CASE EVENT DATE: 20151208
